FAERS Safety Report 5379915-6 (Version None)
Quarter: 2007Q3

REPORT INFORMATION
  Report Type: 
  Country: None (occurrence: None)
  Receive Date: 20070706
  Receipt Date: 20070627
  Transmission Date: 20080115
  Serious: Yes (Other)
  Sender: FDA-Public Use
  Company Number: PHBS2007SE06438

PATIENT
  Age: 45 Year
  Sex: Female

DRUGS (4)
  1. ZOMETA [Suspect]
     Indication: METASTASES TO BONE
     Dosage: UNK, UNK
     Dates: start: 20060421, end: 20070403
  2. TAXOTERE [Concomitant]
     Dates: start: 20060421, end: 20060628
  3. HERCEPTIN [Concomitant]
     Dates: start: 20060627
  4. XELODA [Concomitant]
     Dates: start: 20060911, end: 20070314

REACTIONS (2)
  - ARTHRALGIA [None]
  - OSTEONECROSIS [None]
